FAERS Safety Report 13929671 (Version 1)
Quarter: 2017Q3

REPORT INFORMATION
  Report Type: Spontaneous
  Country: US (occurrence: US)
  Receive Date: 20170901
  Receipt Date: 20170901
  Transmission Date: 20171127
  Serious: No
  Sender: FDA-Public Use
  Company Number: US-UNICHEM LABORATORIES LIMITED-UCM201610-000243

PATIENT
  Sex: Female
  Weight: 77.11 kg

DRUGS (1)
  1. BISOPROLOL FUMARATE+HYDROCHLOROTHIAZIDE [Suspect]
     Active Substance: BISOPROLOL FUMARATE\HYDROCHLOROTHIAZIDE
     Dates: start: 20160828, end: 20161010

REACTIONS (4)
  - Hypersensitivity [Unknown]
  - Rash [Unknown]
  - Swelling face [Recovered/Resolved]
  - Urticaria [Unknown]
